FAERS Safety Report 19733861 (Version 1)
Quarter: 2021Q3

REPORT INFORMATION
  Report Type: Spontaneous
  Country: KR (occurrence: KR)
  Receive Date: 20210823
  Receipt Date: 20210823
  Transmission Date: 20211014
  Serious: Yes (Other)
  Sender: FDA-Public Use
  Company Number: KR-MACLEODS PHARMACEUTICALS US LTD-MAC2021032396

PATIENT

DRUGS (10)
  1. FLUNITRAZEPAM [Concomitant]
     Active Substance: FLUNITRAZEPAM
     Indication: INSOMNIA
     Dosage: 1 MILLIGRAM, QD
     Route: 065
  2. OLANZAPINE 15 MG [Suspect]
     Active Substance: OLANZAPINE
     Indication: SCHIZOPHRENIA
     Dosage: 15 MILLIGRAM, QD
     Route: 065
  3. LORAZEPAM. [Concomitant]
     Active Substance: LORAZEPAM
     Indication: INSOMNIA
     Dosage: 2 MILLIGRAM, QD
     Route: 065
  4. BENZTROPINE. [Concomitant]
     Active Substance: BENZTROPINE
     Indication: INSOMNIA
     Dosage: 1 MILLIGRAM, QD
     Route: 065
  5. FLUNITRAZEPAM [Concomitant]
     Active Substance: FLUNITRAZEPAM
     Indication: AKATHISIA
  6. PROPRANOLOL [Concomitant]
     Active Substance: PROPRANOLOL HYDROCHLORIDE
     Indication: INSOMNIA
     Dosage: 20 MILLIGRAM, QD
     Route: 065
  7. PROPRANOLOL [Concomitant]
     Active Substance: PROPRANOLOL HYDROCHLORIDE
     Indication: AKATHISIA
  8. BENZTROPINE. [Concomitant]
     Active Substance: BENZTROPINE
     Indication: AKATHISIA
  9. ARIPIPRAZOLE  15 MG [Suspect]
     Active Substance: ARIPIPRAZOLE
     Indication: SCHIZOPHRENIA
     Dosage: 15 MILLIGRAM, QD
     Route: 065
  10. LORAZEPAM. [Concomitant]
     Active Substance: LORAZEPAM
     Indication: AKATHISIA
     Dosage: 4 MILLIGRAM, QD, INJECTED
     Route: 042

REACTIONS (5)
  - Hallucination, auditory [Unknown]
  - Urinary incontinence [Unknown]
  - Neuroleptic malignant syndrome [Recovering/Resolving]
  - Therapy partial responder [Unknown]
  - Alanine aminotransferase increased [Unknown]
